FAERS Safety Report 13995428 (Version 1)
Quarter: 2017Q3

REPORT INFORMATION
  Report Type: Spontaneous
  Country: TR (occurrence: TR)
  Receive Date: 20170921
  Receipt Date: 20170921
  Transmission Date: 20171128
  Serious: Yes (Hospitalization)
  Sender: FDA-Public Use
  Company Number: TR-VISTAPHARM, INC.-VER201709-000602

PATIENT
  Age: 4 Day
  Sex: Male
  Weight: 3.25 kg

DRUGS (4)
  1. HYDROCODONE AND ACETAMINOPHEN [Suspect]
     Active Substance: ACETAMINOPHEN\HYDROCODONE
     Route: 048
  2. CEFDINIR/CLAVULANIC ACID [Suspect]
     Active Substance: CEFDINIR\CLAVULANIC ACID
     Route: 048
  3. BEMIPARIN SODIUM [Suspect]
     Active Substance: BEMIPARIN SODIUM
     Route: 058
  4. IRON III HYDROXIDE [Suspect]
     Active Substance: FERRIC OXYHYDROXIDE
     Route: 048

REACTIONS (18)
  - Drug administration error [Unknown]
  - Prothrombin time prolonged [None]
  - Convulsion neonatal [Recovered/Resolved]
  - Alanine aminotransferase decreased [None]
  - Hypopnoea [None]
  - Blood potassium decreased [None]
  - Wrong patient received medication [None]
  - Metabolic acidosis [Recovered/Resolved]
  - Haemoglobin decreased [None]
  - Activated partial thromboplastin time prolonged [None]
  - Blood sodium increased [None]
  - Blood chloride increased [None]
  - Acute kidney injury [Recovered/Resolved]
  - Toxicity to various agents [Recovered/Resolved]
  - Blood calcium decreased [None]
  - Blood phosphorus increased [None]
  - Blood creatine phosphokinase increased [None]
  - Blood potassium increased [None]
